FAERS Safety Report 10050992 (Version 1)
Quarter: 2014Q1

REPORT INFORMATION
  Report Type: Spontaneous
  Country: US (occurrence: None)
  Receive Date: 20140328
  Receipt Date: 20140328
  Transmission Date: 20141002
  Serious: Yes (Hospitalization)
  Sender: FDA-Public Use
  Company Number: 2014AP002256

PATIENT
  Age: 14 Year
  Sex: Female

DRUGS (4)
  1. MYCOPHENOLATE MOFETIL [Suspect]
  2. RANITIDINE HCL [Suspect]
  3. PREDNISONE [Suspect]
  4. TACROLIMUS [Suspect]

REACTIONS (1)
  - Colitis [None]
